FAERS Safety Report 12283441 (Version 1)
Quarter: 2016Q2

REPORT INFORMATION
  Report Type: Spontaneous
  Country: US (occurrence: US)
  Receive Date: 20160419
  Receipt Date: 20160419
  Transmission Date: 20160815
  Serious: Yes (Life-Threatening)
  Sender: FDA-Public Use
  Company Number: US-ROXANE LABORATORIES, INC.-2016-RO-00677RO

PATIENT
  Age: 65 Year
  Sex: Female

DRUGS (2)
  1. VALACYCLOVIR HCL [Suspect]
     Active Substance: VALACYCLOVIR HYDROCHLORIDE
     Indication: HERPES ZOSTER
     Dosage: 3 G
     Route: 065
  2. PREDNISONE. [Concomitant]
     Active Substance: PREDNISONE
     Indication: HERPES ZOSTER
     Route: 065

REACTIONS (1)
  - Neurotoxicity [Recovered/Resolved]
